FAERS Safety Report 20907613 (Version 1)
Quarter: 2022Q2

REPORT INFORMATION
  Report Type: Report from Study
  Country: RO (occurrence: RO)
  Receive Date: 20220602
  Receipt Date: 20220602
  Transmission Date: 20220721
  Serious: Yes (Other)
  Sender: FDA-Public Use
  Company Number: RO-002147023-NVSC2022RO116489

PATIENT

DRUGS (1)
  1. RUXOLITINIB [Suspect]
     Active Substance: RUXOLITINIB
     Indication: Polycythaemia vera
     Dosage: 10 MG
     Route: 065
     Dates: start: 2019

REACTIONS (4)
  - Fall [Unknown]
  - Femur fracture [Unknown]
  - Malaise [Unknown]
  - Dizziness [Unknown]
